FAERS Safety Report 21015581 (Version 1)
Quarter: 2022Q2

REPORT INFORMATION
  Report Type: Other
  Country: KR (occurrence: None)
  Receive Date: 20220628
  Receipt Date: 20220628
  Transmission Date: 20220721
  Serious: Yes (Other)
  Sender: FDA-Public Use
  Company Number: KR-ROCHE-3123612

PATIENT
  Age: 73 Year
  Sex: Male
  Weight: 50.8 kg

DRUGS (4)
  1. ATEZOLIZUMAB [Suspect]
     Active Substance: ATEZOLIZUMAB
     Indication: Hepatocellular carcinoma
     Dosage: NEXT DOSES ON 29/APR/2021, 20/MAY/2021, 10/JUN/2021, 01/JUL/2021, 22/JUL/2021.
     Route: 041
     Dates: start: 20210408
  2. BEVACIZUMAB [Suspect]
     Active Substance: BEVACIZUMAB
     Indication: Hepatocellular carcinoma
     Dosage: NEXT DOSES ON 29/APR/2021, 20/MAY/2021, 10/JUN/2021, 01/JUL/2021, 22/JUL/2021.
     Route: 042
     Dates: start: 20210408
  3. URSODIOL [Concomitant]
     Active Substance: URSODIOL
     Dates: start: 20210408
  4. GODEX (SOUTH KOREA) [Concomitant]
     Dates: start: 20210408

REACTIONS (1)
  - Melaena [Recovered/Resolved]

NARRATIVE: CASE EVENT DATE: 20210411
